FAERS Safety Report 19058628 (Version 1)
Quarter: 2021Q1

REPORT INFORMATION
  Report Type: Spontaneous
  Country: US (occurrence: US)
  Receive Date: 20210325
  Receipt Date: 20210325
  Transmission Date: 20210420
  Serious: Yes (Other)
  Sender: FDA-Public Use
  Company Number: US-ASTELLAS-2021US008370

PATIENT
  Sex: Male

DRUGS (1)
  1. PADCEV [Suspect]
     Active Substance: ENFORTUMAB VEDOTIN-EJFV
     Indication: BLADDER CANCER
     Dosage: 1.25 MG/KG, CYCLIC (ON 1,8 AND 15 DAYS FOR TOTAL OF 6 CYCLE)
     Route: 065
     Dates: start: 20200507, end: 20210126

REACTIONS (2)
  - Neuropathy peripheral [Unknown]
  - Leukopenia [Unknown]
